FAERS Safety Report 8351223-0 (Version None)
Quarter: 2012Q2

REPORT INFORMATION
  Report Type: 
  Country: None (occurrence: None)
  Receive Date: 20120510
  Receipt Date: 20120502
  Transmission Date: 20120825
  Serious: Yes (Other)
  Sender: FDA-Public Use
  Company Number: US-ASTRAZENECA-2012SE28629

PATIENT
  Age: 73 Year
  Sex: Female

DRUGS (1)
  1. SYMBICORT [Suspect]
     Route: 055

REACTIONS (4)
  - OROPHARYNGEAL PAIN [None]
  - DIABETES MELLITUS [None]
  - ASTHMA [None]
  - NEOPLASM MALIGNANT [None]
